FAERS Safety Report 8573914-9 (Version None)
Quarter: 2012Q3

REPORT INFORMATION
  Report Type: 
  Country: None (occurrence: None)
  Receive Date: 20120806
  Receipt Date: 20120401
  Transmission Date: 20120928
  Serious: Yes (Death, Hospitalization)
  Sender: FDA-Public Use
  Company Number: DE-CELGENEUS-062-50794-12052826

PATIENT
  Age: 77 Year
  Sex: Male
  Weight: 73 kg

DRUGS (12)
  1. VIDAZA [Suspect]
     Dosage: 75 MILLIGRAM/SQ. METER
     Route: 058
     Dates: end: 20110803
  2. VIDAZA [Suspect]
     Dosage: 75 MILLIGRAM/SQ. METER
     Route: 058
     Dates: start: 20111005
  3. VIDAZA [Suspect]
     Dosage: 75 MILLIGRAM/SQ. METER
     Route: 058
     Dates: start: 20110810
  4. VIDAZA [Suspect]
     Dosage: 75 MILLIGRAM/SQ. METER
     Route: 058
     Dates: start: 20110907
  5. VIDAZA [Suspect]
     Dosage: 75 MILLIGRAM/SQ. METER
     Route: 058
     Dates: start: 20111228, end: 20120102
  6. RED BLOOD CELLS [Concomitant]
     Route: 041
     Dates: start: 20110201
  7. VIDAZA [Suspect]
     Dosage: 75 MILLIGRAM/SQ. METER
     Route: 058
     Dates: start: 20110511
  8. VIDAZA [Suspect]
     Dosage: 75 MILLIGRAM/SQ. METER
     Route: 058
     Dates: start: 20110316
  9. VIDAZA [Suspect]
     Dosage: 75 MILLIGRAM/SQ. METER
     Route: 058
     Dates: start: 20110608
  10. VIDAZA [Suspect]
     Dosage: 75 MILLIGRAM/SQ. METER
     Route: 058
     Dates: start: 20111102, end: 20111130
  11. VIDAZA [Suspect]
     Dosage: 75 MILLIGRAM/SQ. METER
     Route: 058
     Dates: start: 20110131, end: 20110228
  12. VIDAZA [Suspect]
     Dosage: 75 MILLIGRAM/SQ. METER
     Route: 058
     Dates: start: 20110413

REACTIONS (8)
  - GENERAL PHYSICAL HEALTH DETERIORATION [None]
  - PLATELET COUNT ABNORMAL [None]
  - PNEUMONIA [None]
  - WHITE BLOOD CELL COUNT ABNORMAL [None]
  - NAUSEA [None]
  - PYREXIA [None]
  - HAEMOGLOBIN ABNORMAL [None]
  - DEATH [None]
